FAERS Safety Report 4874476-X (Version None)
Quarter: 2006Q1

REPORT INFORMATION
  Report Type: 
  Country: None (occurrence: None)
  Receive Date: 20060106
  Receipt Date: 20051205
  Transmission Date: 20060701
  Serious: Yes (Other)
  Sender: FDA-Public Use
  Company Number: JP-ROCHE-427636

PATIENT
  Age: 36 Year
  Sex: Female
  Weight: 55 kg

DRUGS (6)
  1. PEGASYS [Suspect]
     Dosage: DISCONTINUED BECAUSE OF POSSIBILITY OF PREGNANCY
     Route: 058
     Dates: start: 20050304, end: 20050415
  2. PEGASYS [Suspect]
     Route: 058
     Dates: start: 20050506, end: 20051007
  3. FERROUS FUMARATE [Suspect]
     Dosage: DOSAGE REGIMEN REPORTED AS 305MG
     Route: 048
     Dates: start: 20050620, end: 20050703
  4. SOLANAX [Concomitant]
     Indication: INSOMNIA
     Route: 048
     Dates: start: 20050819, end: 20050915
  5. DEPAS [Concomitant]
     Indication: INSOMNIA
     Route: 048
     Dates: start: 20050819, end: 20050915
  6. LOXONIN [Concomitant]
     Dosage: DOSAGE REGIMEN REPORTED AS 60MG
     Route: 048
     Dates: start: 20050527, end: 20050715

REACTIONS (4)
  - ABORTION SPONTANEOUS [None]
  - DRUG EXPOSURE DURING PREGNANCY [None]
  - INTRA-UTERINE DEATH [None]
  - PREGNANCY [None]
